FAERS Safety Report 9143438 (Version 1)
Quarter: 2013Q1

REPORT INFORMATION
  Report Type: Spontaneous
  Country: US (occurrence: US)
  Receive Date: 20130306
  Receipt Date: 20130306
  Transmission Date: 20140127
  Serious: No
  Sender: FDA-Public Use
  Company Number: US-ENDO PHARMACEUTICALS INC.-OPER20110329

PATIENT
  Age: 51 None
  Sex: Female
  Weight: 59.02 kg

DRUGS (4)
  1. OPANA ER 20MG [Suspect]
     Indication: PAIN
     Route: 048
     Dates: start: 20111130
  2. OPANA ER 20MG [Suspect]
     Dosage: UNKNOWN
     Route: 048
     Dates: start: 201108
  3. NORCO [Concomitant]
     Indication: PAIN
     Route: 048
     Dates: start: 2001
  4. CYTOMEL [Concomitant]
     Indication: THYROID DISORDER
     Route: 048

REACTIONS (18)
  - Abnormal dreams [Not Recovered/Not Resolved]
  - Energy increased [Not Recovered/Not Resolved]
  - Feeling abnormal [Recovered/Resolved]
  - Pain [Not Recovered/Not Resolved]
  - Irritability [Unknown]
  - Tobacco abuse [Not Recovered/Not Resolved]
  - Urinary incontinence [Unknown]
  - Alcoholism [Not Recovered/Not Resolved]
  - Pollakiuria [Unknown]
  - Pain in extremity [Unknown]
  - Night sweats [Not Recovered/Not Resolved]
  - Decreased appetite [Not Recovered/Not Resolved]
  - Somnolence [Not Recovered/Not Resolved]
  - Constipation [Not Recovered/Not Resolved]
  - Withdrawal syndrome [Unknown]
  - Anxiety [Unknown]
  - Agitation [Unknown]
  - Drug ineffective [Unknown]
